FAERS Safety Report 6329506-5 (Version None)
Quarter: 2009Q3

REPORT INFORMATION
  Report Type: 
  Country: None (occurrence: None)
  Receive Date: 20090825
  Receipt Date: 20090825
  Transmission Date: 20100115
  Serious: Yes (Hospitalization, Other)
  Sender: FDA-Public Use
  Company Number: None

PATIENT
  Age: 57 Year
  Sex: Female
  Weight: 72.5755 kg

DRUGS (3)
  1. CYMBALTA [Suspect]
     Indication: FIBROMYALGIA
     Dosage: 60MGS 1 DAILY PO
     Route: 048
     Dates: start: 20060116, end: 20090815
  2. CYMBALTA [Suspect]
     Indication: NEURALGIA
     Dosage: 60MGS 1 DAILY PO
     Route: 048
     Dates: start: 20060116, end: 20090815
  3. CYMBALTA [Suspect]
     Dosage: 30MGS 1 DAILY PO
     Route: 048

REACTIONS (13)
  - AGITATION [None]
  - ASTHENIA [None]
  - BALANCE DISORDER [None]
  - CHILLS [None]
  - CONFUSIONAL STATE [None]
  - DIZZINESS [None]
  - FALL [None]
  - GAIT DISTURBANCE [None]
  - HEADACHE [None]
  - HOT FLUSH [None]
  - HYPERHIDROSIS [None]
  - IRRITABILITY [None]
  - PARAESTHESIA [None]
